FAERS Safety Report 6962131-1 (Version None)
Quarter: 2010Q3

REPORT INFORMATION
  Report Type: 
  Country: None (occurrence: None)
  Receive Date: 20100901
  Receipt Date: 20100901
  Transmission Date: 20110219
  Serious: Yes (Life-Threatening)
  Sender: FDA-Public Use
  Company Number: None

PATIENT
  Sex: Male
  Weight: 149 kg

DRUGS (1)
  1. HURRICAINE SPRAY BENZOCAINE 20% BEUTLICH PHARMACEUTICALS [Suspect]
     Indication: ENDOTRACHEAL INTUBATION COMPLICATION
     Dosage: 1SPRAY { 0.5 SECONDS DURATION ONCE TOP ONE TIME USE
     Route: 061

REACTIONS (4)
  - BLOOD PH DECREASED [None]
  - METHAEMOGLOBINAEMIA [None]
  - OXYGEN SATURATION DECREASED [None]
  - PO2 INCREASED [None]
